FAERS Safety Report 18016567 (Version 2)
Quarter: 2020Q3

REPORT INFORMATION
  Report Type: Spontaneous
  Country: EG (occurrence: EG)
  Receive Date: 20200713
  Receipt Date: 20200717
  Transmission Date: 20201103
  Serious: Yes (Hospitalization, Other)
  Sender: FDA-Public Use
  Company Number: EG-SA-2020SA178377

PATIENT

DRUGS (1)
  1. CEREZYME [Suspect]
     Active Substance: IMIGLUCERASE
     Dosage: UNK
     Route: 041
     Dates: start: 20050712

REACTIONS (9)
  - Hepatic cirrhosis [Unknown]
  - Haematemesis [Unknown]
  - Hepatitis C [Unknown]
  - Haemorrhage [Unknown]
  - Disease progression [Unknown]
  - Ascites [Unknown]
  - Varices oesophageal [Unknown]
  - Hepatic failure [Unknown]
  - Rectal haemorrhage [Unknown]
